FAERS Safety Report 5944982-5 (Version None)
Quarter: 2008Q4

REPORT INFORMATION
  Report Type: 
  Country: None (occurrence: None)
  Receive Date: 20081107
  Receipt Date: 20081103
  Transmission Date: 20090506
  Serious: Yes (Hospitalization)
  Sender: FDA-Public Use
  Company Number: US-MERCK-0811USA00255

PATIENT
  Age: 80 Year
  Sex: Female

DRUGS (2)
  1. ZOCOR [Suspect]
     Indication: BLOOD CHOLESTEROL INCREASED
     Route: 048
     Dates: start: 20030101
  2. BONIVA [Concomitant]
     Route: 065

REACTIONS (3)
  - CEREBRAL HAEMORRHAGE [None]
  - FALL [None]
  - HEADACHE [None]
